FAERS Safety Report 10142026 (Version 9)
Quarter: 2017Q2

REPORT INFORMATION
  Report Type: Report from Study
  Country: CZ (occurrence: CZ)
  Receive Date: 20140429
  Receipt Date: 20170530
  Transmission Date: 20170829
  Serious: Yes (Death, Life-Threatening, Hospitalization, Other)
  Sender: FDA-Public Use
  Company Number: PHHO2014CZ005862

PATIENT
  Age: 67 Year
  Sex: Male
  Weight: 72 kg

DRUGS (6)
  1. ANOPYRIN [Concomitant]
     Active Substance: ASPIRIN
     Indication: CORONARY ARTERY DISEASE
     Dosage: 100 MG, TID
     Route: 048
  2. FUROSEMIDE. [Suspect]
     Active Substance: FUROSEMIDE
     Indication: PRODUCT USED FOR UNKNOWN INDICATION
     Route: 065
  3. RLX030 [Suspect]
     Active Substance: SERELAXIN
     Indication: CARDIAC FAILURE ACUTE
     Dosage: 30 UG/KG, QD
     Route: 042
     Dates: start: 20140417, end: 20140418
  4. BETALOC ZOK [Concomitant]
     Active Substance: METOPROLOL SUCCINATE
     Indication: CORONARY ARTERY DISEASE
     Dosage: 50 MG, TID
     Route: 048
     Dates: start: 201308
  5. PIRAMIL [Concomitant]
     Active Substance: RAMIPRIL
     Indication: CARDIAC FAILURE CHRONIC
     Dosage: 112.5 MG, TID
     Route: 048
     Dates: start: 201308
  6. VEROSPIRON [Concomitant]
     Active Substance: SPIRONOLACTONE
     Indication: CARDIAC FAILURE CHRONIC
     Dosage: 25 MG, TID
     Route: 048
     Dates: start: 201308

REACTIONS (6)
  - Pneumonia [Fatal]
  - Multiple organ dysfunction syndrome [Fatal]
  - Cardiac failure [Fatal]
  - Cardiogenic shock [Fatal]
  - Hypotension [Recovered/Resolved]
  - Septic shock [Fatal]

NARRATIVE: CASE EVENT DATE: 20140418
